FAERS Safety Report 10784434 (Version 1)
Quarter: 2015Q1

REPORT INFORMATION
  Report Type: Spontaneous
  Country: US (occurrence: None)
  Receive Date: 20150209
  Receipt Date: 20150209
  Transmission Date: 20150721
  Serious: No
  Sender: FDA-Public Use
  Company Number: None

PATIENT
  Age: 64 Year
  Sex: Male
  Weight: 79.38 kg

DRUGS (1)
  1. SIMVASTATIN 40 [Suspect]
     Active Substance: SIMVASTATIN
     Indication: CORONARY ARTERY DISEASE
     Dosage: 40MD 1/DAY
     Route: 048

REACTIONS (5)
  - Asthenia [None]
  - Pain [None]
  - Motor dysfunction [None]
  - Atrophy [None]
  - Pain in extremity [None]

NARRATIVE: CASE EVENT DATE: 20150107
